FAERS Safety Report 6175617-7 (Version None)
Quarter: 2009Q2

REPORT INFORMATION
  Report Type: 
  Country: None (occurrence: None)
  Receive Date: 20090429
  Receipt Date: 20090421
  Transmission Date: 20091009
  Serious: Yes (Other)
  Sender: FDA-Public Use
  Company Number: ESP09000054

PATIENT
  Age: 71 Year
  Sex: Female

DRUGS (1)
  1. RISEDRONATE SODIUM [Suspect]
     Indication: OSTEOPOROSIS
     Dosage: 35 MG, ORAL
     Route: 048
     Dates: start: 20070305, end: 20071014

REACTIONS (3)
  - EYE INFLAMMATION [None]
  - OCULAR HYPERAEMIA [None]
  - VISUAL IMPAIRMENT [None]
